FAERS Safety Report 9909099 (Version 1)
Quarter: 2014Q1

REPORT INFORMATION
  Report Type: Spontaneous
  Country: US (occurrence: None)
  Receive Date: 20140212
  Receipt Date: 20140212
  Transmission Date: 20141002
  Serious: Yes (Other)
  Sender: FDA-Public Use
  Company Number: 20140050

PATIENT
  Age: 27 Year
  Sex: Female

DRUGS (10)
  1. PHENYTOIN SODIUM INJECTION (40042-009-02) 50 [Suspect]
     Indication: CONVULSION
     Dosage: LOADING DOSSE
  2. PHENOBARBITAL [Suspect]
     Indication: CONVULSION
     Route: 042
  3. PENTOBARBITAL [Suspect]
     Dosage: INITIAL DOSE
  4. LEVETIRACETAM [Concomitant]
  5. MIDAZOLAM [Concomitant]
  6. TOPIRAMATE [Concomitant]
  7. LACOSAMIDE [Concomitant]
  8. NOREPINEPHRINE [Concomitant]
  9. LORAZEPAM [Concomitant]
  10. PROPOFOL [Concomitant]

REACTIONS (11)
  - Drug reaction with eosinophilia and systemic symptoms [None]
  - Hypotension [None]
  - Convulsion [None]
  - Pyrexia [None]
  - Transaminases increased [None]
  - Ileus [None]
  - Drug interaction [None]
  - Drug level decreased [None]
  - Hepatotoxicity [None]
  - Encephalitis autoimmune [None]
  - Toxicity to various agents [None]
